FAERS Safety Report 7077142-8 (Version None)
Quarter: 2010Q4

REPORT INFORMATION
  Report Type: 
  Country: None (occurrence: None)
  Receive Date: 20101101
  Receipt Date: 20101025
  Transmission Date: 20110411
  Serious: Yes (Other)
  Sender: FDA-Public Use
  Company Number: A0888408A

PATIENT
  Sex: Female

DRUGS (1)
  1. ALBENDAZOLE [Suspect]
     Indication: CUTANEOUS LARVA MIGRANS
     Dosage: 400MG TWICE PER DAY
     Route: 048
     Dates: start: 20100801

REACTIONS (3)
  - BLISTER [None]
  - ERYTHEMA [None]
  - PHOTOSENSITIVITY REACTION [None]
